FAERS Safety Report 25608711 (Version 1)
Quarter: 2025Q3

REPORT INFORMATION
  Report Type: Spontaneous
  Country: US (occurrence: US)
  Receive Date: 20250726
  Receipt Date: 20250726
  Transmission Date: 20251020
  Serious: No
  Sender: AMGEN
  Company Number: US-AMGEN-USASP2025143531

PATIENT
  Sex: Male

DRUGS (13)
  1. OTEZLA [Suspect]
     Active Substance: APREMILAST
     Indication: Psoriasis
     Dosage: 30 MILLIGRAM, BID
     Route: 048
     Dates: start: 202303
  2. AMLODIPINE BESYLATE [Concomitant]
     Active Substance: AMLODIPINE BESYLATE
  3. ASPIRIN [Concomitant]
     Active Substance: ASPIRIN
  4. ATORVASTATIN [Concomitant]
     Active Substance: ATORVASTATIN
  5. BREO ELLIPTA [Concomitant]
     Active Substance: FLUTICASONE FUROATE\VILANTEROL TRIFENATATE
     Route: 048
  6. CICLODAN [Concomitant]
     Active Substance: CICLOPIROX
  7. FLUOCINONIDE [Concomitant]
     Active Substance: FLUOCINONIDE
  8. GABAPENTIN [Concomitant]
     Active Substance: GABAPENTIN
  9. LORATADINE [Concomitant]
     Active Substance: LORATADINE
  10. SILDENAFIL [Concomitant]
     Active Substance: SILDENAFIL
  11. DESONIDE [Concomitant]
     Active Substance: DESONIDE
  12. LISINOPRIL [Concomitant]
     Active Substance: LISINOPRIL
  13. VITAMIN D2 [Concomitant]
     Active Substance: ERGOCALCIFEROL

REACTIONS (2)
  - Psoriasis [Recovered/Resolved]
  - Therapy interrupted [Recovered/Resolved]
